FAERS Safety Report 8428681-6 (Version None)
Quarter: 2012Q2

REPORT INFORMATION
  Report Type: 
  Country: None (occurrence: None)
  Receive Date: 20120606
  Receipt Date: 20120525
  Transmission Date: 20120825
  Serious: Yes (Death, Hospitalization)
  Sender: FDA-Public Use
  Company Number: UTC-019294

PATIENT
  Age: 46 Year
  Sex: Male
  Weight: 156.4 kg

DRUGS (4)
  1. COUMADIN [Concomitant]
  2. DIURETICS (DIURETICS) [Concomitant]
  3. REMODULIN [Suspect]
     Indication: PULMONARY HYPERTENSION
     Dosage: 10.08 UG/KG (0.007 UG/KG, 1 IN 1 MIN), INTRAVENOUS
     Route: 042
     Dates: start: 20120327
  4. REVATIO [Concomitant]

REACTIONS (1)
  - CEREBRAL HAEMORRHAGE [None]
